FAERS Safety Report 20002302 (Version 4)
Quarter: 2022Q3

REPORT INFORMATION
  Report Type: Report from Study
  Country: US (occurrence: US)
  Receive Date: 20211027
  Receipt Date: 20220713
  Transmission Date: 20221027
  Serious: No
  Sender: FDA-Public Use
  Company Number: US-NOVARTISTESTPH-NVSC2021US244334

PATIENT
  Sex: Female

DRUGS (2)
  1. ENTRESTO [Suspect]
     Active Substance: SACUBITRIL\VALSARTAN
     Indication: Product used for unknown indication
     Dosage: 1 DOSAGE FORM, BID (24.26 MG/KG)
     Route: 048
  2. COUMADIN [Suspect]
     Active Substance: WARFARIN SODIUM
     Indication: Product used for unknown indication
     Dosage: UNK
     Route: 065

REACTIONS (8)
  - Glomerular filtration rate decreased [Unknown]
  - Blood creatine increased [Unknown]
  - Sinusitis [Recovering/Resolving]
  - Ear discomfort [Unknown]
  - Hypotension [Unknown]
  - Dizziness [Unknown]
  - Weight fluctuation [Unknown]
  - Arthritis [Unknown]
